FAERS Safety Report 6634358-X (Version None)
Quarter: 2010Q1

REPORT INFORMATION
  Report Type: 
  Country: None (occurrence: None)
  Receive Date: 20100225
  Receipt Date: 20090303
  Transmission Date: 20100710
  Serious: Yes (Other)
  Sender: FDA-Public Use
  Company Number: DSA_33315_2009

PATIENT
  Sex: Female

DRUGS (3)
  1. VASOTEC [Suspect]
     Indication: DRUG USE FOR UNKNOWN INDICATION
     Dosage: (2.5 MG BID ORAL)
     Route: 048
     Dates: end: 20020817
  2. VIOXX [Suspect]
     Indication: DRUG USE FOR UNKNOWN INDICATION
     Dosage: (DF ORAL)
     Route: 048
  3. TRIAMTERENE AND HYDROCHLOROTHIAZIDE [Suspect]
     Indication: DRUG USE FOR UNKNOWN INDICATION
     Dosage: (DF)

REACTIONS (3)
  - COUGH [None]
  - HYPERSENSITIVITY [None]
  - RENAL IMPAIRMENT [None]
